FAERS Safety Report 25790633 (Version 1)
Quarter: 2025Q3

REPORT INFORMATION
  Report Type: Spontaneous
  Country: CN (occurrence: CN)
  Receive Date: 20250911
  Receipt Date: 20250911
  Transmission Date: 20251021
  Serious: Yes (Hospitalization, Other)
  Sender: MACLEODS
  Company Number: CN-PFIZER INC-2020464351

PATIENT

DRUGS (3)
  1. PREGABALIN [Suspect]
     Active Substance: PREGABALIN
     Indication: Headache
     Route: 048
     Dates: start: 20190616, end: 201906
  2. OXYCODONE HYDROCHLORIDE [Suspect]
     Active Substance: OXYCODONE HYDROCHLORIDE
     Indication: Headache
     Route: 065
     Dates: start: 201906, end: 201906
  3. ACETAMINOPHEN\OXYCODONE HYDROCHLORIDE [Suspect]
     Active Substance: ACETAMINOPHEN\OXYCODONE HYDROCHLORIDE
     Indication: Headache
     Route: 048
     Dates: start: 20190530, end: 201906

REACTIONS (7)
  - Delirium [Recovered/Resolved]
  - Cognitive disorder [Recovered/Resolved]
  - Irritability [Recovered/Resolved]
  - Disorientation [Recovered/Resolved]
  - Seizure [Recovered/Resolved]
  - Self-medication [Recovered/Resolved]
  - Drug interaction [Recovered/Resolved]

NARRATIVE: CASE EVENT DATE: 20190601
